FAERS Safety Report 18553458 (Version 2)
Quarter: 2021Q1

REPORT INFORMATION
  Report Type: Spontaneous
  Country: US (occurrence: US)
  Receive Date: 20201127
  Receipt Date: 20210104
  Transmission Date: 20210419
  Serious: Yes (Other)
  Sender: FDA-Public Use
  Company Number: US-CELGENEUS-USA-20201106736

PATIENT
  Age: 65 Year
  Sex: Male

DRUGS (1)
  1. REVLIMID [Suspect]
     Active Substance: LENALIDOMIDE
     Indication: PLASMA CELL MYELOMA
     Dosage: 25 MILLIGRAM
     Route: 048
     Dates: start: 202008

REACTIONS (5)
  - Toothache [Unknown]
  - Pulmonary embolism [Unknown]
  - Gingival pain [Unknown]
  - Muscle spasms [Not Recovered/Not Resolved]
  - Tongue blistering [Unknown]

NARRATIVE: CASE EVENT DATE: 20201027
